FAERS Safety Report 4330506-5 (Version None)
Quarter: 2004Q1

REPORT INFORMATION
  Report Type: 
  Country: None (occurrence: None)
  Receive Date: 20040329
  Receipt Date: 20031205
  Transmission Date: 20041129
  Serious: Yes (Life-Threatening, Hospitalization)
  Sender: FDA-Public Use
  Company Number: 6816

PATIENT
  Age: 55 Year
  Sex: Female

DRUGS (7)
  1. LEUCOVORIN CALCIUM [Suspect]
     Dosage: 308 MG  IV
     Route: 042
     Dates: start: 20031110
  2. ADRUCIL [Suspect]
     Dosage: 616 MG IV
     Route: 042
     Dates: start: 20031110
  3. PACLITAXEL [Suspect]
     Dosage: 125 MG IV
     Route: 042
     Dates: start: 20031110
  4. DILAUDID [Concomitant]
  5. PROTONIX [Concomitant]
  6. XANAX [Concomitant]
  7. COMPAZINE [Concomitant]

REACTIONS (5)
  - CHILLS [None]
  - DIARRHOEA [None]
  - FATIGUE [None]
  - FEBRILE NEUTROPENIA [None]
  - OESOPHAGITIS [None]
